FAERS Safety Report 17693106 (Version 1)
Quarter: 2020Q2

REPORT INFORMATION
  Report Type: Spontaneous
  Country: US (occurrence: US)
  Receive Date: 20200420
  Receipt Date: 20200420
  Transmission Date: 20200714
  Serious: No
  Sender: FDA-Public Use
  Company Number: None

PATIENT
  Age: 70 Year
  Sex: Female

DRUGS (1)
  1. FORTEO [Suspect]
     Active Substance: TERIPARATIDE
     Route: 058
     Dates: start: 201911

REACTIONS (6)
  - Product dose omission [None]
  - Circumstance or information capable of leading to medication error [None]
  - Poor quality product administered [None]
  - Product communication issue [None]
  - Product storage error [None]
  - Circumstance or information capable of leading to device use error [None]

NARRATIVE: CASE EVENT DATE: 20200420
